FAERS Safety Report 4857771-X (Version None)
Quarter: 2005Q4

REPORT INFORMATION
  Report Type: 
  Country: None (occurrence: None)
  Receive Date: 20051219
  Receipt Date: 20050404
  Transmission Date: 20060501
  Serious: No
  Sender: FDA-Public Use
  Company Number: US-GLAXOSMITHKLINE-A0552539A

PATIENT
  Age: 50 Year
  Sex: Male

DRUGS (4)
  1. NICODERM CQ [Suspect]
  2. NICODERM CQ [Suspect]
  3. COMMIT [Suspect]
  4. NICORETTE [Suspect]

REACTIONS (8)
  - APPLICATION SITE ERYTHEMA [None]
  - APPLICATION SITE INFLAMMATION [None]
  - AXILLARY PAIN [None]
  - BLISTER [None]
  - CONTUSION [None]
  - DRUG INEFFECTIVE [None]
  - LOCAL SWELLING [None]
  - SKIN INFLAMMATION [None]
